FAERS Safety Report 4788484-0 (Version None)
Quarter: 2005Q4

REPORT INFORMATION
  Report Type: 
  Country: None (occurrence: None)
  Receive Date: 20051005
  Receipt Date: 20050926
  Transmission Date: 20060501
  Serious: Yes (Other)
  Sender: FDA-Public Use
  Company Number: 2005UW14344

PATIENT
  Age: 68 Year
  Sex: Male

DRUGS (4)
  1. ZESTORETIC [Suspect]
     Route: 048
  2. BISOPROLOL [Concomitant]
  3. METFORMIN [Concomitant]
  4. PRAVASTATIN SODIUM [Concomitant]

REACTIONS (5)
  - ARTHRALGIA [None]
  - ASTHENIA [None]
  - BONE PAIN [None]
  - DIFFICULTY IN WALKING [None]
  - HYPOKINESIA [None]
